FAERS Safety Report 16976343 (Version 8)
Quarter: 2025Q3

REPORT INFORMATION
  Report Type: Report from Study
  Country: CA (occurrence: CA)
  Receive Date: 20191030
  Receipt Date: 20250812
  Transmission Date: 20251021
  Serious: Yes (Hospitalization, Other)
  Sender: GLAXOSMITHKLINE
  Company Number: CA-GLAXOSMITHKLINE-CA2019AMR195163

PATIENT
  Age: 60 Year
  Sex: Male

DRUGS (141)
  1. ADVAIR HFA [Suspect]
     Active Substance: FLUTICASONE PROPIONATE\SALMETEROL XINAFOATE
     Indication: Product used for unknown indication
     Dosage: 2 PUFF(S), BID
  2. MEPOLIZUMAB [Suspect]
     Active Substance: MEPOLIZUMAB
     Indication: Asthma
     Dosage: 100 MG, MO
  3. VENTOLIN HFA [Suspect]
     Active Substance: ALBUTEROL SULFATE
     Indication: Product used for unknown indication
     Route: 065
  4. VENTOLIN HFA [Suspect]
     Active Substance: ALBUTEROL SULFATE
     Route: 065
  5. ALBUTEROL SULFATE [Suspect]
     Active Substance: ALBUTEROL SULFATE
     Indication: Product used for unknown indication
  6. ALBUTEROL SULFATE [Suspect]
     Active Substance: ALBUTEROL SULFATE
  7. ALBUTEROL SULFATE [Suspect]
     Active Substance: ALBUTEROL SULFATE
  8. ALBUTEROL SULFATE [Suspect]
     Active Substance: ALBUTEROL SULFATE
  9. ALBUTEROL SULFATE [Suspect]
     Active Substance: ALBUTEROL SULFATE
  10. ALBUTEROL SULFATE [Suspect]
     Active Substance: ALBUTEROL SULFATE
     Dosage: 2.5 MG, QD
  11. INCRUSE ELLIPTA [Suspect]
     Active Substance: UMECLIDINIUM BROMIDE
     Indication: Product used for unknown indication
     Dosage: 1 PUFF(S), QD
     Route: 065
  12. BREO ELLIPTA [Suspect]
     Active Substance: FLUTICASONE FUROATE\VILANTEROL TRIFENATATE
     Indication: Product used for unknown indication
     Dosage: 1 DF, QD, 90 DAYS
  13. BREO ELLIPTA [Suspect]
     Active Substance: FLUTICASONE FUROATE\VILANTEROL TRIFENATATE
     Dosage: 1 DF, QD, 90 DAYS
  14. BREO ELLIPTA [Suspect]
     Active Substance: FLUTICASONE FUROATE\VILANTEROL TRIFENATATE
     Dosage: 1 DF, QD, 90 DAYS
  15. BREO ELLIPTA [Suspect]
     Active Substance: FLUTICASONE FUROATE\VILANTEROL TRIFENATATE
     Dosage: 1 DF, QD, 60 DAYS
  16. UMECLIDINIUM BROMIDE\VILANTEROL TRIFENATATE [Suspect]
     Active Substance: UMECLIDINIUM BROMIDE\VILANTEROL TRIFENATATE
     Indication: Product used for unknown indication
     Route: 065
  17. UMECLIDINIUM BROMIDE [Suspect]
     Active Substance: UMECLIDINIUM BROMIDE
     Indication: Product used for unknown indication
     Dosage: 1 DF, QD
  18. UMECLIDINIUM BROMIDE [Suspect]
     Active Substance: UMECLIDINIUM BROMIDE
     Dosage: 2.5 MG, QD
  19. FLUTICASONE PROPIONATE\SALMETEROL XINAFOATE [Suspect]
     Active Substance: FLUTICASONE PROPIONATE\SALMETEROL XINAFOATE
     Indication: Product used for unknown indication
  20. FLUTICASONE PROPIONATE [Suspect]
     Active Substance: FLUTICASONE PROPIONATE
     Indication: Product used for unknown indication
  21. ALBUTEROL SULFATE [Suspect]
     Active Substance: ALBUTEROL SULFATE
     Indication: Product used for unknown indication
     Dosage: 2 PUFF(S), QID
     Route: 065
  22. ALBUTEROL SULFATE [Suspect]
     Active Substance: ALBUTEROL SULFATE
  23. ALBUTEROL SULFATE [Suspect]
     Active Substance: ALBUTEROL SULFATE
  24. AZITHROMYCIN [Suspect]
     Active Substance: AZITHROMYCIN
     Indication: Product used for unknown indication
     Route: 065
  25. ALVESCO [Suspect]
     Active Substance: CICLESONIDE
     Indication: Product used for unknown indication
     Dosage: 2 PUFF(S), BID, 90 DAYS
     Route: 065
  26. ALVESCO [Suspect]
     Active Substance: CICLESONIDE
     Dosage: 2 PUFF(S), BID
     Route: 065
  27. ALVESCO [Suspect]
     Active Substance: CICLESONIDE
     Dosage: 2 PUFF(S), BID
     Route: 065
  28. FUROSEMIDE [Suspect]
     Active Substance: FUROSEMIDE
     Indication: Product used for unknown indication
     Dosage: 20 MG, QD
  29. FUROSEMIDE [Suspect]
     Active Substance: FUROSEMIDE
     Dosage: 20 MG, QD
  30. FUROSEMIDE [Suspect]
     Active Substance: FUROSEMIDE
     Dosage: 20 MG, QD
  31. PREDNISONE [Suspect]
     Active Substance: PREDNISONE
     Indication: Product used for unknown indication
     Dosage: 50 MG, QD
  32. PREDNISONE [Suspect]
     Active Substance: PREDNISONE
     Dosage: 40 MG, QD
  33. PREDNISONE [Suspect]
     Active Substance: PREDNISONE
     Dosage: 50 MG, QD, 03 DAYS
  34. PREDNISONE [Suspect]
     Active Substance: PREDNISONE
     Route: 065
  35. PREDNISONE [Suspect]
     Active Substance: PREDNISONE
  36. PREDNISONE [Suspect]
     Active Substance: PREDNISONE
  37. PREDNISONE [Suspect]
     Active Substance: PREDNISONE
     Dosage: 25 MG, QD, 3 DAYS
  38. PREDNISONE [Suspect]
     Active Substance: PREDNISONE
     Dosage: 25 MG, QD, 3 DAYS
  39. PREDNISONE [Suspect]
     Active Substance: PREDNISONE
     Dosage: 25 MG, QD, 3 DAYS
  40. PREDNISONE [Suspect]
     Active Substance: PREDNISONE
     Dosage: 25 MG, QD, 3 DAYS
  41. PREDNISONE [Suspect]
     Active Substance: PREDNISONE
     Dosage: 50 MG, QD, 5 DAYS
  42. PREDNISONE [Suspect]
     Active Substance: PREDNISONE
     Dosage: 50 MG, QD, 5 DAYS
  43. PREDNISONE [Suspect]
     Active Substance: PREDNISONE
     Dosage: 50 MG, QD, 5 DAYS
  44. PREDNISONE [Suspect]
     Active Substance: PREDNISONE
     Dosage: 50 MG, QD, 4 DAYS
  45. PREDNISONE [Suspect]
     Active Substance: PREDNISONE
     Dosage: 50 MG, QD, 5 DAYS
  46. PREDNISONE [Suspect]
     Active Substance: PREDNISONE
  47. ACETAMINOPHEN\TRAMADOL HYDROCHLORIDE [Suspect]
     Active Substance: ACETAMINOPHEN\TRAMADOL HYDROCHLORIDE
     Indication: Product used for unknown indication
  48. AMLODIPINE BESYLATE [Suspect]
     Active Substance: AMLODIPINE BESYLATE
     Indication: Product used for unknown indication
     Dosage: 2.5 MG, QD
     Route: 065
  49. AMLODIPINE BESYLATE [Suspect]
     Active Substance: AMLODIPINE BESYLATE
     Dosage: 2.5 MG, MO
     Route: 065
  50. BISOPROLOL FUMARATE [Suspect]
     Active Substance: BISOPROLOL FUMARATE
     Indication: Product used for unknown indication
     Dosage: 2.5 MG, QD, 30 DAYS
     Route: 065
  51. BISOPROLOL FUMARATE [Suspect]
     Active Substance: BISOPROLOL FUMARATE
     Dosage: 0.25 DF, QD
     Route: 065
  52. DOXYCYCLINE [Suspect]
     Active Substance: DOXYCYCLINE
     Indication: Product used for unknown indication
     Dosage: 100 MG, BID
     Route: 065
  53. DOXYCYCLINE [Suspect]
     Active Substance: DOXYCYCLINE
     Dosage: 100 MG, BID
  54. DOXYCYCLINE [Suspect]
     Active Substance: DOXYCYCLINE
     Route: 065
  55. DOXYCYCLINE [Suspect]
     Active Substance: DOXYCYCLINE
     Dosage: 100 MG, BID
     Route: 065
  56. DOXYCYCLINE [Suspect]
     Active Substance: DOXYCYCLINE
     Dosage: 100 MG, BID
  57. DOXYCYCLINE [Suspect]
     Active Substance: DOXYCYCLINE
     Dosage: 100 MG, BID
     Route: 065
  58. ATROVENT HFA [Suspect]
     Active Substance: IPRATROPIUM BROMIDE
     Indication: Product used for unknown indication
     Dosage: 20 UG, QID, 25 DAYS
  59. AMLODIPINE MESYLATE [Suspect]
     Active Substance: AMLODIPINE MESYLATE
     Indication: Product used for unknown indication
     Dosage: 2.5 MG, MO, 30 DAYS
  60. ACETAMINOPHEN\BUTALBITAL [Suspect]
     Active Substance: ACETAMINOPHEN\BUTALBITAL
     Indication: Product used for unknown indication
  61. CYCLOBENZAPRINE [Suspect]
     Active Substance: CYCLOBENZAPRINE
     Indication: Product used for unknown indication
  62. INDAPAMIDE\PERINDOPRIL ERBUMINE [Suspect]
     Active Substance: INDAPAMIDE\PERINDOPRIL ERBUMINE
     Indication: Product used for unknown indication
     Dosage: 1 DF (TABLET), QD, 90 DAYS
  63. INDAPAMIDE\PERINDOPRIL ERBUMINE [Suspect]
     Active Substance: INDAPAMIDE\PERINDOPRIL ERBUMINE
     Dosage: 1 DF, QD, 90 DAYS
  64. INDAPAMIDE\PERINDOPRIL ERBUMINE [Suspect]
     Active Substance: INDAPAMIDE\PERINDOPRIL ERBUMINE
     Dosage: 1 DF, QD, 90 DAYS
  65. INDAPAMIDE\PERINDOPRIL ERBUMINE [Suspect]
     Active Substance: INDAPAMIDE\PERINDOPRIL ERBUMINE
     Dosage: 1 DF, QD, 90 DAYS
  66. INDAPAMIDE\PERINDOPRIL ERBUMINE [Suspect]
     Active Substance: INDAPAMIDE\PERINDOPRIL ERBUMINE
     Dosage: 1 DF, QD, 90 DAYS
  67. INDAPAMIDE\PERINDOPRIL ERBUMINE [Suspect]
     Active Substance: INDAPAMIDE\PERINDOPRIL ERBUMINE
     Dosage: 1 DF, QD, 90 DAYS
  68. VARENICLINE TARTRATE [Suspect]
     Active Substance: VARENICLINE TARTRATE
     Indication: Product used for unknown indication
  69. PERINDOPRIL [Suspect]
     Active Substance: PERINDOPRIL
     Indication: Product used for unknown indication
     Dosage: 8 MG, QD
  70. CYCLOBENZAPRINE [Suspect]
     Active Substance: CYCLOBENZAPRINE
     Indication: Product used for unknown indication
     Dosage: 10 MG, TID, 5 DAYS
  71. CYCLOBENZAPRINE HYDROCHLORIDE\DICLOFENAC POTASSIUM [Suspect]
     Active Substance: CYCLOBENZAPRINE HYDROCHLORIDE\DICLOFENAC POTASSIUM
     Indication: Product used for unknown indication
  72. DOXYCYCLINE HYCLATE [Suspect]
     Active Substance: DOXYCYCLINE HYCLATE
     Indication: Product used for unknown indication
  73. DOXYCYCLINE HYCLATE [Suspect]
     Active Substance: DOXYCYCLINE HYCLATE
  74. DOXYCYCLINE HYCLATE [Suspect]
     Active Substance: DOXYCYCLINE HYCLATE
  75. DOXYCYCLINE HYCLATE [Suspect]
     Active Substance: DOXYCYCLINE HYCLATE
  76. DOXYCYCLINE HYCLATE [Suspect]
     Active Substance: DOXYCYCLINE HYCLATE
  77. DOXYCYCLINE HYCLATE [Suspect]
     Active Substance: DOXYCYCLINE HYCLATE
  78. ENTRESTO [Suspect]
     Active Substance: SACUBITRIL\VALSARTAN
     Indication: Product used for unknown indication
     Dosage: 1 DF, BID
  79. ENTRESTO [Suspect]
     Active Substance: SACUBITRIL\VALSARTAN
     Dosage: 1 DF, BID
  80. ENTRESTO [Suspect]
     Active Substance: SACUBITRIL\VALSARTAN
     Dosage: 1 DF, BID
  81. ENTRESTO [Suspect]
     Active Substance: SACUBITRIL\VALSARTAN
     Dosage: 1 DF, BID
  82. ENTRESTO [Suspect]
     Active Substance: SACUBITRIL\VALSARTAN
     Dosage: 1 DF, BID
  83. ENTRESTO [Suspect]
     Active Substance: SACUBITRIL\VALSARTAN
     Dosage: 1 DF, BID
  84. ENTRESTO [Suspect]
     Active Substance: SACUBITRIL\VALSARTAN
     Dosage: 1 DF, BID
  85. ENTRESTO [Suspect]
     Active Substance: SACUBITRIL\VALSARTAN
     Dosage: 1 DF, BID
  86. ENTRESTO [Suspect]
     Active Substance: SACUBITRIL\VALSARTAN
     Dosage: 1 DF, BID
  87. FORMOTEROL [Suspect]
     Active Substance: FORMOTEROL
     Indication: Product used for unknown indication
  88. FUROSEMIDE [Suspect]
     Active Substance: FUROSEMIDE
     Indication: Product used for unknown indication
     Dosage: 20 MG, FOR 100 DAYS
     Route: 065
  89. FUROSEMIDE [Suspect]
     Active Substance: FUROSEMIDE
     Dosage: 20 MG, QD FOR 90 DAYS
     Route: 065
  90. FUROSEMIDE [Suspect]
     Active Substance: FUROSEMIDE
     Dosage: 2.5 MG, QD
  91. FUROSEMIDE\POTASSIUM CHLORIDE [Suspect]
     Active Substance: FUROSEMIDE\POTASSIUM CHLORIDE
     Indication: Product used for unknown indication
  92. IVABRADINE HYDROCHLORIDE [Suspect]
     Active Substance: IVABRADINE HYDROCHLORIDE
     Indication: Product used for unknown indication
     Dosage: 7.5 MG, BID, 90 DAYS
  93. INSPRA [Suspect]
     Active Substance: EPLERENONE
     Indication: Product used for unknown indication
     Dosage: 50 MG, QD
  94. INSPRA [Suspect]
     Active Substance: EPLERENONE
     Dosage: 50 MG, QD
  95. INSPRA [Suspect]
     Active Substance: EPLERENONE
     Dosage: 50 MG, QD
  96. INSPRA [Suspect]
     Active Substance: EPLERENONE
     Dosage: 50 MG, QD
  97. INSPRA [Suspect]
     Active Substance: EPLERENONE
     Dosage: 50 MG, QD
  98. INSPRA [Suspect]
     Active Substance: EPLERENONE
     Dosage: 50 MG, QD
  99. INSPRA [Suspect]
     Active Substance: EPLERENONE
     Dosage: 50 MG, QD
  100. INSPRA [Suspect]
     Active Substance: EPLERENONE
     Dosage: 50 MG, QD
  101. KETOROLAC TROMETHAMINE [Suspect]
     Active Substance: KETOROLAC TROMETHAMINE
     Indication: Product used for unknown indication
  102. KETOROLAC [Suspect]
     Active Substance: KETOROLAC TROMETHAMINE
     Indication: Product used for unknown indication
  103. KETOROLAC TROMETHAMINE [Suspect]
     Active Substance: KETOROLAC TROMETHAMINE
     Indication: Product used for unknown indication
     Dosage: 10 MG, TID
  104. MONTELUKAST [Suspect]
     Active Substance: MONTELUKAST
     Indication: Product used for unknown indication
     Dosage: 10 MG, QD
  105. MONTELUKAST [Suspect]
     Active Substance: MONTELUKAST
  106. MONTELUKAST [Suspect]
     Active Substance: MONTELUKAST
     Dosage: 2.5 MG, QD
  107. MONTELUKAST SODIUM [Suspect]
     Active Substance: MONTELUKAST SODIUM
     Indication: Product used for unknown indication
     Dosage: 10 MG, QD, 30 DAYS
  108. MONTELUKAST SODIUM [Suspect]
     Active Substance: MONTELUKAST SODIUM
     Dosage: 10 MG, QD
  109. MONTELUKAST SODIUM [Suspect]
     Active Substance: MONTELUKAST SODIUM
     Dosage: 10 MG, QD
  110. MONTELUKAST SODIUM [Suspect]
     Active Substance: MONTELUKAST SODIUM
     Dosage: 10 MG, QD
  111. MONTELUKAST SODIUM [Suspect]
     Active Substance: MONTELUKAST SODIUM
     Dosage: 10 MG, QD
  112. MONTELUKAST SODIUM [Suspect]
     Active Substance: MONTELUKAST SODIUM
     Dosage: 10 MG, QD
  113. MONTELUKAST SODIUM [Suspect]
     Active Substance: MONTELUKAST SODIUM
     Dosage: 10 MG, QD
  114. MONTELUKAST SODIUM [Suspect]
     Active Substance: MONTELUKAST SODIUM
     Dosage: 10 MG, QD
  115. MONTELUKAST SODIUM [Suspect]
     Active Substance: MONTELUKAST SODIUM
     Dosage: 10 MG, QD
  116. MONTELUKAST SODIUM [Suspect]
     Active Substance: MONTELUKAST SODIUM
     Dosage: 10 MG, QD
  117. PERINDOPRIL [Suspect]
     Active Substance: PERINDOPRIL
     Indication: Product used for unknown indication
  118. INDAPAMIDE\PERINDOPRIL [Suspect]
     Active Substance: INDAPAMIDE\PERINDOPRIL
     Indication: Product used for unknown indication
  119. INDAPAMIDE\PERINDOPRIL [Suspect]
     Active Substance: INDAPAMIDE\PERINDOPRIL
     Dosage: 2.5 MG, QD
  120. PREGABALIN [Suspect]
     Active Substance: PREGABALIN
     Indication: Product used for unknown indication
     Dosage: 50 MG, BID
  121. PREGABALIN [Suspect]
     Active Substance: PREGABALIN
     Indication: Product used for unknown indication
  122. CARVEDILOL [Suspect]
     Active Substance: CARVEDILOL
     Indication: Product used for unknown indication
     Dosage: 6.25 MG, BID, 90 DAYS
  123. GLYCOPYRROLATE [Suspect]
     Active Substance: GLYCOPYRROLATE
     Indication: Asthma
     Dosage: 1 DF, QD, 30 DAYS
  124. GLYCOPYRROLATE [Suspect]
     Active Substance: GLYCOPYRROLATE
     Dosage: 50 UG, QD
  125. GLYCOPYRROLATE [Suspect]
     Active Substance: GLYCOPYRROLATE
     Dosage: 50 UG, QD
  126. SPIRONOLACTONE [Suspect]
     Active Substance: SPIRONOLACTONE
     Indication: Product used for unknown indication
     Dosage: 12.5 MG, QD
  127. SPIRONOLACTONE [Suspect]
     Active Substance: SPIRONOLACTONE
     Indication: Product used for unknown indication
  128. SPIRIVA RESPIMAT [Suspect]
     Active Substance: TIOTROPIUM BROMIDE
     Indication: Product used for unknown indication
     Dosage: 2 PUFF(S), QD
     Route: 065
  129. SINGULAIR [Suspect]
     Active Substance: MONTELUKAST SODIUM
     Indication: Product used for unknown indication
     Dosage: 10 MG, QD
     Route: 065
  130. SINGULAIR [Suspect]
     Active Substance: MONTELUKAST SODIUM
     Dosage: 2.5 MG, QD
  131. TIOTROPIUM BROMIDE MONOHYDRATE [Suspect]
     Active Substance: TIOTROPIUM BROMIDE MONOHYDRATE
     Indication: Product used for unknown indication
  132. TIOTROPIUM BROMIDE MONOHYDRATE [Suspect]
     Active Substance: TIOTROPIUM BROMIDE MONOHYDRATE
     Dosage: 2.5 MG, QD
  133. MONTELUKAST SODIUM [Suspect]
     Active Substance: MONTELUKAST SODIUM
     Indication: Product used for unknown indication
     Dosage: 10 MG, QD
  134. ZENHALE [Suspect]
     Active Substance: FORMOTEROL FUMARATE\MOMETASONE FUROATE
     Indication: Product used for unknown indication
  135. ZENHALE [Suspect]
     Active Substance: FORMOTEROL FUMARATE\MOMETASONE FUROATE
     Dosage: 2 PUFF(S), BID
  136. TRAMADOL [Suspect]
     Active Substance: TRAMADOL
     Indication: Product used for unknown indication
  137. ACEBUTOLOL HYDROCHLORIDE [Suspect]
     Active Substance: ACEBUTOLOL HYDROCHLORIDE
     Indication: Product used for unknown indication
     Dosage: 2.5 MG, QD
  138. AZITHROMYCIN MONOHYDRATE [Suspect]
     Active Substance: AZITHROMYCIN MONOHYDRATE
     Indication: Product used for unknown indication
     Dosage: 2.5 MG, QD
  139. VILANTEROL TRIFENATATE [Suspect]
     Active Substance: VILANTEROL TRIFENATATE
     Indication: Product used for unknown indication
  140. BISOPROLOL [Suspect]
     Active Substance: BISOPROLOL
     Indication: Product used for unknown indication
  141. BISOPROLOL FUMARATE [Suspect]
     Active Substance: BISOPROLOL FUMARATE
     Indication: Product used for unknown indication

REACTIONS (14)
  - Asthma [Recovering/Resolving]
  - Cardiomyopathy [Recovering/Resolving]
  - Ischaemic cardiomyopathy [Recovering/Resolving]
  - Dyspnoea [Recovering/Resolving]
  - Obstructive airways disorder [Recovering/Resolving]
  - Bronchial hyperreactivity [Recovering/Resolving]
  - Pulmonary function test abnormal [Recovering/Resolving]
  - Cardiac disorder [Recovering/Resolving]
  - Bronchitis [Recovering/Resolving]
  - Eosinophilia [Recovering/Resolving]
  - Breath sounds abnormal [Recovering/Resolving]
  - Asthma-chronic obstructive pulmonary disease overlap syndrome [Recovering/Resolving]
  - Drug intolerance [Recovering/Resolving]
  - Drug ineffective [Recovering/Resolving]

NARRATIVE: CASE EVENT DATE: 20180201
